FAERS Safety Report 12170499 (Version 1)
Quarter: 2016Q1

REPORT INFORMATION
  Report Type: Spontaneous
  Country: US (occurrence: None)
  Receive Date: 20160310
  Receipt Date: 20160310
  Transmission Date: 20160526
  Serious: Yes (Death)
  Sender: FDA-Public Use
  Company Number: None

PATIENT
  Age: 94 Year
  Sex: Male

DRUGS (15)
  1. NEUPOGEN [Suspect]
     Active Substance: FILGRASTIM
     Indication: ANAEMIA
     Dosage: NEUPOGEN 300 MCG, ANC IS LESS 1000, SUBCUTANEOUOS
     Route: 058
  2. LISINOPRIL. [Concomitant]
     Active Substance: LISINOPRIL
  3. MUCINEX [Concomitant]
     Active Substance: GUAIFENESIN
  4. TROSPIUM [Concomitant]
     Active Substance: TROSPIUM
  5. PROCRIT [Suspect]
     Active Substance: ERYTHROPOIETIN
     Indication: ANAEMIA
     Route: 058
  6. LEVOTHYROXIN [Concomitant]
     Active Substance: LEVOTHYROXINE
  7. VITAMIN B-1 [Concomitant]
     Active Substance: THIAMINE
  8. ATENOLOL. [Concomitant]
     Active Substance: ATENOLOL
  9. FINASTERIDE. [Concomitant]
     Active Substance: FINASTERIDE
  10. SODIUIM CHLORIDE [Concomitant]
  11. BUPOROPION [Concomitant]
  12. LIDOCAINE. [Concomitant]
     Active Substance: LIDOCAINE
  13. NORCO [Concomitant]
     Active Substance: ACETAMINOPHEN\HYDROCODONE BITARTRATE
  14. TAMSULOSIN [Concomitant]
     Active Substance: TAMSULOSIN
  15. VITAMIN D3 [Concomitant]
     Active Substance: CHOLECALCIFEROL

REACTIONS (3)
  - Pulmonary oedema [None]
  - Cardiomegaly [None]
  - Death [None]

NARRATIVE: CASE EVENT DATE: 20160307
